FAERS Safety Report 12681791 (Version 1)
Quarter: 2016Q3

REPORT INFORMATION
  Report Type: Spontaneous
  Country: CA (occurrence: US)
  Receive Date: 20160824
  Receipt Date: 20160824
  Transmission Date: 20161109
  Serious: No
  Sender: FDA-Public Use
  Company Number: CA-MYLANLABS-2016M1010582

PATIENT
  Sex: Female

DRUGS (1)
  1. BUPROPION. [Suspect]
     Active Substance: BUPROPION
     Dosage: 300 MG, UNK
     Dates: start: 201511

REACTIONS (1)
  - Drug ineffective [Not Recovered/Not Resolved]
